FAERS Safety Report 9562064 (Version 2)
Quarter: 2013Q3

REPORT INFORMATION
  Report Type: Spontaneous
  Country: HK (occurrence: HK)
  Receive Date: 20130927
  Receipt Date: 20130927
  Transmission Date: 20140515
  Serious: Yes (Hospitalization)
  Sender: FDA-Public Use
  Company Number: HK-009507513-1309HKG005456

PATIENT
  Age: 80 Year
  Sex: Female

DRUGS (3)
  1. SINEMET [Suspect]
     Dosage: UNK
     Route: 050
     Dates: start: 2012
  2. SINEMET 25/100 [Suspect]
     Route: 050
  3. ESOMEPRAZOLE MAGNESIUM [Concomitant]
     Route: 050

REACTIONS (5)
  - Pneumonia [Unknown]
  - Blood pressure increased [Unknown]
  - Wrong technique in drug usage process [Unknown]
  - Drug dispensing error [Unknown]
  - Incorrect route of drug administration [Unknown]
